FAERS Safety Report 13668269 (Version 2)
Quarter: 2025Q4

REPORT INFORMATION
  Report Type: Spontaneous
  Country: US (occurrence: None)
  Receive Date: 20170620
  Receipt Date: 20251219
  Transmission Date: 20260117
  Serious: Yes (Death, Other)
  Sender: AUROBINDO
  Company Number: US-AUROBINDO-AUR-APL-2017-35384

PATIENT
  Age: 66 Year
  Sex: Male

DRUGS (1)
  1. METHYLPREDNISOLONE [Suspect]
     Active Substance: METHYLPREDNISOLONE
     Indication: Product used for unknown indication
     Dosage: 1000 MG, EMPIRICAL HIGH-DOSE METHYLPREDNISOLONE
     Route: 065

REACTIONS (2)
  - Myocarditis [Fatal]
  - Drug ineffective [Not Recovered/Not Resolved]
